FAERS Safety Report 5427145-1 (Version None)
Quarter: 2007Q3

REPORT INFORMATION
  Report Type: 
  Country: None (occurrence: None)
  Receive Date: 20070828
  Receipt Date: 20070820
  Transmission Date: 20080115
  Serious: Yes (Hospitalization)
  Sender: FDA-Public Use
  Company Number: PHRM2007FR02047

PATIENT
  Age: 44 Year
  Sex: Male

DRUGS (13)
  1. FELDENE [Suspect]
     Indication: INTERVERTEBRAL DISC PROTRUSION
     Dosage: COURSE OF 1WEEK 4 X/YEAR
     Route: 030
     Dates: end: 20070322
  2. DETENSIEL [Concomitant]
     Dosage: 10 MG, QD
     Route: 048
  3. ASPIRIN [Concomitant]
     Dosage: 325 MG, QD
     Route: 048
  4. ATARAX /POR/ [Concomitant]
     Dosage: 25 MG, BID
     Route: 048
  5. INIPOMP [Concomitant]
     Dosage: 40 MG, QD
     Route: 048
  6. DAFALGAN [Concomitant]
     Indication: PAIN
     Dosage: 1 G, PRN
     Route: 048
  7. CONTRAMAL [Concomitant]
     Indication: PAIN
     Dosage: 50 MG, PRN
     Route: 048
  8. ALPRAZOLAM [Concomitant]
     Dosage: 0.5 MG, TID
     Route: 048
  9. KETOPROFEN [Concomitant]
     Route: 048
     Dates: start: 20040101
  10. LYRICA [Concomitant]
     Dosage: 225 MG/DAY
     Route: 048
     Dates: end: 20070330
  11. HEXAQUINE [Concomitant]
  12. LAROXYL [Concomitant]
     Route: 048
  13. LESCOL [Suspect]
     Indication: HYPERCHOLESTEROLAEMIA
     Dosage: 80 MG, QD
     Route: 048
     Dates: start: 20070101, end: 20070402

REACTIONS (8)
  - BLISTER [None]
  - ERYTHEMA MULTIFORME [None]
  - INJECTION SITE ERYTHEMA [None]
  - MOUTH INJURY [None]
  - PRURITUS [None]
  - PYREXIA [None]
  - RASH ERYTHEMATOUS [None]
  - RASH PAPULAR [None]
